FAERS Safety Report 4845646-1 (Version None)
Quarter: 2005Q4

REPORT INFORMATION
  Report Type: 
  Country: None (occurrence: None)
  Receive Date: 20051205
  Receipt Date: 20050517
  Transmission Date: 20060501
  Serious: Yes (Hospitalization, Disabling)
  Sender: FDA-Public Use
  Company Number: US-MERCK-0505USA02263

PATIENT
  Age: 47 Year
  Sex: Female
  Weight: 76 kg

DRUGS (1)
  1. VIOXX [Suspect]
     Indication: ARTHRITIS
     Route: 048
     Dates: start: 20011201, end: 20041001

REACTIONS (14)
  - ANXIETY [None]
  - BLADDER DISORDER [None]
  - CEREBROVASCULAR ACCIDENT [None]
  - CONDITION AGGRAVATED [None]
  - CONVULSION [None]
  - CYSTOPEXY [None]
  - DEPRESSION [None]
  - FIBROMYALGIA [None]
  - MUSCLE SPASMS [None]
  - MYOCARDIAL INFARCTION [None]
  - ORGAN FAILURE [None]
  - PULMONARY EMBOLISM [None]
  - SLEEP APNOEA SYNDROME [None]
  - THROMBOSIS [None]
